FAERS Safety Report 6474206-4 (Version None)
Quarter: 2009Q4

REPORT INFORMATION
  Report Type: 
  Country: None (occurrence: None)
  Receive Date: 20091204
  Receipt Date: 20091204
  Transmission Date: 20100525
  Serious: Yes (Other)
  Sender: FDA-Public Use
  Company Number: US-PFIZER INC-2009287051

PATIENT
  Sex: Female
  Weight: 47.619 kg

DRUGS (1)
  1. ZITHROMAX [Suspect]
     Indication: INFECTION
     Dosage: 500 MG, UNK
     Dates: start: 20091015

REACTIONS (3)
  - ANAL HAEMORRHAGE [None]
  - ANORECTAL DISCOMFORT [None]
  - PROCTALGIA [None]
